FAERS Safety Report 13459528 (Version 1)
Quarter: 2017Q2

REPORT INFORMATION
  Report Type: Other
  Country: GB (occurrence: TN)
  Receive Date: 20170419
  Receipt Date: 20170419
  Transmission Date: 20170830
  Serious: Yes (Death, Life-Threatening, Hospitalization, Other)
  Sender: FDA-Public Use
  Company Number: TN-INTERNATIONAL MEDICATION SYSTEMS, LIMITED-1065549

PATIENT
  Age: 58 Year
  Sex: Female

DRUGS (6)
  1. CLOPIDOGREL [Concomitant]
     Active Substance: CLOPIDOGREL BISULFATE
  2. OXYGEN. [Concomitant]
     Active Substance: OXYGEN
  3. CAPTOPRIL. [Concomitant]
     Active Substance: CAPTOPRIL
  4. AUGMENTIN [Suspect]
     Active Substance: AMOXICILLIN\CLAVULANATE POTASSIUM
  5. SIMVASTATIN. [Concomitant]
     Active Substance: SIMVASTATIN
  6. EPINEPHRINE. [Suspect]
     Active Substance: EPINEPHRINE
     Indication: ANAPHYLACTIC SHOCK

REACTIONS (5)
  - Kounis syndrome [Fatal]
  - Cardiogenic shock [Fatal]
  - Vascular stent thrombosis [Fatal]
  - Acute myocardial infarction [Fatal]
  - Death [Fatal]

NARRATIVE: CASE EVENT DATE: 200709
